FAERS Safety Report 17002194 (Version 1)
Quarter: 2019Q4

REPORT INFORMATION
  Report Type: Spontaneous
  Country: US (occurrence: US)
  Receive Date: 20191106
  Receipt Date: 20191106
  Transmission Date: 20200122
  Serious: No
  Sender: FDA-Public Use
  Company Number: US-ROCHE-2336975

PATIENT
  Sex: Male

DRUGS (1)
  1. PULMOZYME [Suspect]
     Active Substance: DORNASE ALFA
     Indication: PRODUCT USED FOR UNKNOWN INDICATION
     Dosage: 1 MG/ML REFRIGERATED AMPOULE
     Route: 065
     Dates: start: 201906

REACTIONS (3)
  - Intentional product use issue [Unknown]
  - Off label use [Unknown]
  - No adverse event [Unknown]
